FAERS Safety Report 16850526 (Version 1)
Quarter: 2019Q3

REPORT INFORMATION
  Report Type: Spontaneous
  Country: US (occurrence: US)
  Receive Date: 20190925
  Receipt Date: 20190925
  Transmission Date: 20191005
  Serious: No
  Sender: FDA-Public Use
  Company Number: US-UPSHER-SMITH LABORATORIES, LLC-2018USL00519

PATIENT
  Age: 63 Year
  Sex: Female
  Weight: 81.63 kg

DRUGS (4)
  1. BACLOFEN. [Suspect]
     Active Substance: BACLOFEN
     Indication: SPINAL CORD INJURY
     Dosage: 10 MG, 3X/DAY (MORNING, LUNCH, AND BEDTIME)
     Route: 048
     Dates: start: 201808
  2. PRAVASTATIN. [Concomitant]
     Active Substance: PRAVASTATIN
  3. IMURAN [Concomitant]
     Active Substance: AZATHIOPRINE
  4. BACLOFEN. [Suspect]
     Active Substance: BACLOFEN
     Indication: MUSCLE SPASMS
     Dosage: 5 MG, AS NEEDED (HALF DOSE IF NEEDED DURING THE NIGHT)
     Route: 048
     Dates: start: 2018

REACTIONS (1)
  - Therapeutic product effect incomplete [Not Recovered/Not Resolved]

NARRATIVE: CASE EVENT DATE: 201808
